FAERS Safety Report 9694032 (Version 2)
Quarter: 2014Q2

REPORT INFORMATION
  Report Type: Spontaneous
  Country: AU (occurrence: AU)
  Receive Date: 20131118
  Receipt Date: 20140429
  Transmission Date: 20141212
  Serious: Yes (Death, Congenital Anomaly, Other)
  Sender: FDA-Public Use
  Company Number: AU-ABBVIE-13P-008-1158109-00

PATIENT
  Sex: Male

DRUGS (1)
  1. EPILIM [Suspect]
     Indication: MATERNAL EXPOSURE TIMING UNSPECIFIED
     Route: 064

REACTIONS (10)
  - Pulmonary oedema [Fatal]
  - Congenital eye disorder [Fatal]
  - Congenital jaw malformation [Fatal]
  - Ear malformation [Fatal]
  - Heart disease congenital [Fatal]
  - Hepatocellular injury [Fatal]
  - Limb reduction defect [Fatal]
  - Skull malformation [Fatal]
  - Cyanosis [Fatal]
  - Foetal exposure during pregnancy [Unknown]
